FAERS Safety Report 11754168 (Version 5)
Quarter: 2018Q1

REPORT INFORMATION
  Report Type: Report from Study
  Country: ZA (occurrence: ZA)
  Receive Date: 20151119
  Receipt Date: 20180124
  Transmission Date: 20180508
  Serious: Yes (Hospitalization, Other)
  Sender: FDA-Public Use
  Company Number: PHHY2015ZA149889

PATIENT
  Age: 76 Year
  Sex: Male

DRUGS (5)
  1. ACLASTA [Suspect]
     Active Substance: ZOLEDRONIC ACID
     Dosage: 1 DF, Q12MO (5MG/100ML)
     Route: 042
     Dates: start: 2016, end: 2016
  2. ACLASTA [Suspect]
     Active Substance: ZOLEDRONIC ACID
     Indication: OSTEOPOROSIS
     Dosage: 1 DF, Q12MO (5MG/100ML)
     Route: 042
     Dates: start: 201306
  3. ACLASTA [Suspect]
     Active Substance: ZOLEDRONIC ACID
     Dosage: 1 DF, Q12MO (5 MG/100 ML)
     Route: 042
     Dates: start: 2017
  4. ACLASTA [Suspect]
     Active Substance: ZOLEDRONIC ACID
     Dosage: 1 DF, Q12MO (5MG/100ML)
     Route: 042
     Dates: start: 201410, end: 201410
  5. ULSANIC [Concomitant]
     Active Substance: SUCRALFATE
     Indication: CHRONIC GASTRITIS
     Route: 065

REACTIONS (13)
  - Concomitant disease aggravated [Unknown]
  - Abdominal discomfort [Unknown]
  - Anxiety [Unknown]
  - Oesophageal ulcer [Unknown]
  - Dysphagia [Unknown]
  - Hypophagia [Unknown]
  - Cerebrovascular accident [Unknown]
  - Large intestine polyp [Unknown]
  - Confusional state [Unknown]
  - Underweight [Unknown]
  - Pulmonary oedema [Unknown]
  - Faeces discoloured [Unknown]
  - Back pain [Unknown]

NARRATIVE: CASE EVENT DATE: 20151007
